FAERS Safety Report 12654291 (Version 1)
Quarter: 2016Q3

REPORT INFORMATION
  Report Type: Spontaneous
  Country: US (occurrence: US)
  Receive Date: 20160816
  Receipt Date: 20160816
  Transmission Date: 20161109
  Serious: Yes (Congenital Anomaly, Other)
  Sender: FDA-Public Use
  Company Number: US-TEVA-682709USA

PATIENT
  Age: 36 Year
  Sex: Female

DRUGS (1)
  1. COPAXONE [Suspect]
     Active Substance: GLATIRAMER ACETATE
     Indication: MULTIPLE SCLEROSIS
     Dosage: DOSAGE FORM STRENGTH IS UNKNOWN
     Route: 065

REACTIONS (4)
  - Dyspnoea [Unknown]
  - Cerebral palsy [Unknown]
  - Chills [Unknown]
  - Muscle spasms [Recovered/Resolved]
